FAERS Safety Report 9056846 (Version 1)
Quarter: 2013Q1

REPORT INFORMATION
  Report Type: Spontaneous
  Country: US (occurrence: US)
  Receive Date: 20130201
  Receipt Date: 20130201
  Transmission Date: 20140127
  Serious: Yes (Death)
  Sender: FDA-Public Use
  Company Number: US-GLAXOSMITHKLINE-A1010151A

PATIENT
  Age: 46 Year
  Sex: Male

DRUGS (6)
  1. VOTRIENT [Suspect]
     Indication: MALIGNANT NEOPLASM OF RENAL PELVIS
     Dosage: 200MG SEE DOSAGE TEXT
     Route: 048
     Dates: start: 20120508, end: 20121231
  2. RENVELA [Concomitant]
  3. VICODIN [Concomitant]
  4. METOPROLOL [Concomitant]
  5. SENSIPAR [Concomitant]
  6. LASIX [Concomitant]

REACTIONS (1)
  - Death [Fatal]
